FAERS Safety Report 13991168 (Version 1)
Quarter: 2017Q3

REPORT INFORMATION
  Report Type: Report from Study
  Country: CN (occurrence: CN)
  Receive Date: 20170920
  Receipt Date: 20170920
  Transmission Date: 20171128
  Serious: Yes (Other)
  Sender: FDA-Public Use
  Company Number: CN-SUN PHARMACEUTICAL INDUSTRIES LTD-2017R1-150376

PATIENT
  Age: 55 Year
  Sex: Male

DRUGS (6)
  1. CAMPTOSAR [Suspect]
     Active Substance: IRINOTECAN HYDROCHLORIDE
     Indication: LUNG NEOPLASM MALIGNANT
     Route: 065
  2. CARBOPLATIN. [Suspect]
     Active Substance: CARBOPLATIN
     Indication: LUNG NEOPLASM MALIGNANT
     Route: 065
  3. CISPLATIN. [Suspect]
     Active Substance: CISPLATIN
     Indication: LUNG NEOPLASM MALIGNANT
     Route: 065
  4. IRINOTECAN [Suspect]
     Active Substance: IRINOTECAN
     Indication: LUNG NEOPLASM MALIGNANT
     Route: 065
  5. TENIPOSIDE (VM-26) [Suspect]
     Active Substance: TENIPOSIDE
     Indication: LUNG NEOPLASM MALIGNANT
     Route: 065
  6. CAMPTOTHECIN-11 [Suspect]
     Active Substance: IRINOTECAN HYDROCHLORIDE
     Indication: LUNG NEOPLASM MALIGNANT
     Route: 065

REACTIONS (2)
  - Myelodysplastic syndrome [Unknown]
  - Acute myeloid leukaemia [Unknown]
